FAERS Safety Report 21753260 (Version 1)
Quarter: 2022Q4

REPORT INFORMATION
  Report Type: Spontaneous
  Country: US (occurrence: US)
  Receive Date: 20221220
  Receipt Date: 20221220
  Transmission Date: 20230113
  Serious: No
  Sender: FDA-Public Use
  Company Number: US-SA-SAC20221216001116

PATIENT
  Age: 9 Year
  Sex: Male

DRUGS (1)
  1. DUPIXENT [Suspect]
     Active Substance: DUPILUMAB
     Dosage: 200MG FREQ-OTHER
     Route: 058

REACTIONS (2)
  - Injection site irritation [Recovered/Resolved]
  - Therapeutic response shortened [Unknown]
